FAERS Safety Report 9929531 (Version 2)
Quarter: 2014Q1

REPORT INFORMATION
  Report Type: Spontaneous
  Country: US (occurrence: US)
  Receive Date: 20140227
  Receipt Date: 20140227
  Transmission Date: 20141002
  Serious: Yes (Hospitalization, Disabling, Other)
  Sender: FDA-Public Use
  Company Number: US-009507513-1204USA00538

PATIENT
  Sex: Female
  Weight: 68.27 kg

DRUGS (5)
  1. FOSAMAX [Suspect]
     Indication: OSTEOPENIA
     Dosage: 70 MG, UNK
     Route: 048
     Dates: start: 20010622, end: 20060607
  2. BONIVA [Suspect]
     Indication: OSTEOPENIA
     Dosage: 150 MG, UNK
     Route: 048
     Dates: start: 20070607, end: 20080609
  3. BONIVA [Suspect]
     Dosage: 150 MG, UNK
     Route: 048
     Dates: start: 20090403, end: 20100121
  4. VITAMINS (UNSPECIFIED) [Concomitant]
     Dosage: ONCE DAILY
     Dates: start: 1992
  5. CALCIUM (UNSPECIFIED) [Concomitant]
     Dosage: 600 MG, QD
     Dates: start: 2000

REACTIONS (12)
  - Intramedullary rod insertion [Unknown]
  - Osteoporosis [Not Recovered/Not Resolved]
  - Low turnover osteopathy [Not Recovered/Not Resolved]
  - Stress fracture [Not Recovered/Not Resolved]
  - Femur fracture [Not Recovered/Not Resolved]
  - Bone disorder [Unknown]
  - Urinary tract infection [Unknown]
  - Pancreatitis acute [Unknown]
  - Femur fracture [Unknown]
  - Anaemia postoperative [Unknown]
  - Injection [Unknown]
  - Neuropathy peripheral [Unknown]
